FAERS Safety Report 5202225-4 (Version None)
Quarter: 2007Q1

REPORT INFORMATION
  Report Type: 
  Country: None (occurrence: None)
  Receive Date: 20070109
  Receipt Date: 20070108
  Transmission Date: 20070707
  Serious: Yes (Other)
  Sender: FDA-Public Use
  Company Number: US-GLAXOSMITHKLINE-A0634425A

PATIENT
  Age: 48 Year
  Sex: Female

DRUGS (11)
  1. GOODY'S EXTRA STRENGTH HEADACHE POWDER [Suspect]
     Indication: HEADACHE
     Route: 048
  2. HYOSCYAMINE [Concomitant]
  3. TRAZODONE HCL [Concomitant]
  4. KLONOPIN [Concomitant]
  5. EFFEXOR [Concomitant]
  6. ASPIRIN [Concomitant]
  7. REQUIP [Concomitant]
  8. LOVENOX [Concomitant]
  9. ZOCOR [Concomitant]
  10. PLAVIX [Concomitant]
  11. NITROGLYCERIN [Concomitant]

REACTIONS (2)
  - DEPENDENCE [None]
  - INTENTIONAL DRUG MISUSE [None]
